FAERS Safety Report 7284777-6 (Version None)
Quarter: 2011Q1

REPORT INFORMATION
  Report Type: 
  Country: None (occurrence: None)
  Receive Date: 20110210
  Receipt Date: 20110202
  Transmission Date: 20110831
  Serious: Yes (Hospitalization, Other)
  Sender: FDA-Public Use
  Company Number: US-ASTELLAS-2011US000238

PATIENT

DRUGS (20)
  1. TAMSULOSIN HCL [Concomitant]
     Indication: PRODUCT USED FOR UNKNOWN INDICATION
     Dosage: 0.8 MG, UID/QD
     Route: 048
  2. FERROUS SULFATE TAB [Concomitant]
     Indication: PRODUCT USED FOR UNKNOWN INDICATION
     Dosage: 325 MG, TID
     Route: 048
  3. OXYCODONE HCL [Concomitant]
     Indication: PAIN
     Dosage: 5-15 MG, PRN
     Route: 048
  4. HUMALOG [Concomitant]
     Indication: PRODUCT USED FOR UNKNOWN INDICATION
     Dosage: 24 U, UID/QD
     Route: 058
  5. METOLAZONE [Concomitant]
     Indication: OEDEMA PERIPHERAL
  6. COUMADIN [Concomitant]
     Indication: PRODUCT USED FOR UNKNOWN INDICATION
     Dosage: 2 MG, UID/QD
     Route: 048
  7. ARANESP [Concomitant]
     Indication: PRODUCT USED FOR UNKNOWN INDICATION
     Dosage: 1 DF, WEEKLY
     Route: 065
  8. TYLENOL EXTRA-STRENGTH [Concomitant]
     Indication: PAIN
     Dosage: 500-1000 MG, PRN
  9. CELLCEPT [Concomitant]
     Indication: PRODUCT USED FOR UNKNOWN INDICATION
     Dosage: 250 MG, BID
     Route: 048
  10. FUROSEMIDE [Concomitant]
     Indication: PRODUCT USED FOR UNKNOWN INDICATION
     Dosage: 80 MG, BID
     Route: 048
  11. PROTONIX [Concomitant]
     Indication: PRODUCT USED FOR UNKNOWN INDICATION
     Dosage: 40 MG, UID/QD
     Route: 048
  12. LYRICA [Concomitant]
     Indication: PRODUCT USED FOR UNKNOWN INDICATION
     Dosage: 25 MG, TID
     Route: 048
  13. COLACE [Concomitant]
     Indication: FAECES HARD
     Dosage: 100 MG, BID
     Route: 048
  14. PREDNISONE [Concomitant]
     Indication: PRODUCT USED FOR UNKNOWN INDICATION
     Dosage: 2.5 MG, UID/QD
     Route: 048
  15. METOLAZONE [Concomitant]
     Indication: DYSPNOEA
     Dosage: 2.5 -5 MG, WEEKLY AS NEEDED
     Route: 048
  16. PROGRAF [Suspect]
     Indication: RENAL TRANSPLANT
     Dosage: 2 MG, BID
     Route: 048
     Dates: start: 20090820
  17. TOPROL-XL [Concomitant]
     Indication: PRODUCT USED FOR UNKNOWN INDICATION
     Dosage: 50 MG, UID/QD
     Route: 048
  18. CALCIUM [Concomitant]
     Indication: PRODUCT USED FOR UNKNOWN INDICATION
     Dosage: 600 MG, TID
     Route: 065
  19. LANTUS [Concomitant]
     Indication: PRODUCT USED FOR UNKNOWN INDICATION
     Dosage: 12 U, UID/QD
     Route: 058
  20. SENNA [Concomitant]
     Indication: CONSTIPATION
     Dosage: 187 MG, BID
     Route: 048

REACTIONS (11)
  - OSTEOMYELITIS ACUTE [None]
  - SKIN ULCER [None]
  - LEG AMPUTATION [None]
  - CYTOMEGALOVIRUS VIRAEMIA [None]
  - GANGRENE [None]
  - STENOTROPHOMONAS SEPSIS [None]
  - IMMUNOSUPPRESSANT DRUG LEVEL DECREASED [None]
  - ABSCESS LIMB [None]
  - ATELECTASIS [None]
  - HYPOTENSION [None]
  - LEUKOCYTOSIS [None]
